FAERS Safety Report 16266560 (Version 1)
Quarter: 2019Q2

REPORT INFORMATION
  Report Type: Spontaneous
  Country: ES (occurrence: ES)
  Receive Date: 20190502
  Receipt Date: 20190502
  Transmission Date: 20190711
  Serious: Yes (Hospitalization, Other)
  Sender: FDA-Public Use
  Company Number: ES-JNJFOC-20190443904

PATIENT
  Age: 71 Year
  Sex: Female

DRUGS (4)
  1. XARELTO [Suspect]
     Active Substance: RIVAROXABAN
     Indication: ATRIAL FIBRILLATION
     Route: 048
     Dates: start: 20180501, end: 20190122
  2. FUROSEMIDE. [Concomitant]
     Active Substance: FUROSEMIDE
     Indication: CARDIAC FAILURE CONGESTIVE
     Route: 065
     Dates: start: 20180301
  3. BISOPROLOL [Concomitant]
     Active Substance: BISOPROLOL
     Indication: CARDIAC FAILURE CONGESTIVE
     Route: 065
     Dates: start: 20180301
  4. LEVETIRACETAM. [Concomitant]
     Active Substance: LEVETIRACETAM
     Route: 065

REACTIONS (14)
  - Urinary incontinence [Recovering/Resolving]
  - Fall [Recovering/Resolving]
  - Memory impairment [Recovering/Resolving]
  - Ciliary body disorder [Recovering/Resolving]
  - Confusional state [Recovering/Resolving]
  - Catarrh [Recovering/Resolving]
  - Subarachnoid haemorrhage [Recovering/Resolving]
  - Head injury [Recovering/Resolving]
  - Pupils unequal [Recovering/Resolving]
  - Balance disorder [Recovering/Resolving]
  - Arrhythmia [Recovering/Resolving]
  - Subdural haematoma evacuation [Recovering/Resolving]
  - Diaphragmatic paralysis [Recovering/Resolving]
  - Wound [Recovering/Resolving]

NARRATIVE: CASE EVENT DATE: 20190118
